FAERS Safety Report 12655463 (Version 1)
Quarter: 2016Q3

REPORT INFORMATION
  Report Type: Spontaneous
  Country: US (occurrence: US)
  Receive Date: 20160816
  Receipt Date: 20160816
  Transmission Date: 20161109
  Serious: Yes (Other)
  Sender: FDA-Public Use
  Company Number: US-MEDA-2016080038

PATIENT
  Sex: Male
  Weight: 100 kg

DRUGS (3)
  1. FELBATOL [Suspect]
     Active Substance: FELBAMATE
     Indication: LENNOX-GASTAUT SYNDROME
     Route: 048
  2. STRATTERA [Concomitant]
     Active Substance: ATOMOXETINE HYDROCHLORIDE
  3. METFORMIN [Concomitant]
     Active Substance: METFORMIN HYDROCHLORIDE
     Indication: DIABETES MELLITUS

REACTIONS (1)
  - Seizure [Not Recovered/Not Resolved]
